FAERS Safety Report 17561328 (Version 1)
Quarter: 2020Q1

REPORT INFORMATION
  Report Type: Spontaneous
  Country: US (occurrence: US)
  Receive Date: 20200319
  Receipt Date: 20200319
  Transmission Date: 20200409
  Serious: No
  Sender: FDA-Public Use
  Company Number: US-ADAMAS PHARMA, LLC-2020ADA00130

PATIENT
  Age: 63 Year
  Sex: Male

DRUGS (12)
  1. GOCOVRI [Suspect]
     Active Substance: AMANTADINE
     Dosage: 274 MG, 1X/DAY
     Route: 048
     Dates: start: 20200110, end: 202001
  2. UNSPECIFIED ^OTHER THINGS^ [Concomitant]
  3. YOHIMBE (DIETARY SUPPLEMENT\HERBALS) [Suspect]
     Active Substance: DIETARY SUPPLEMENT\HERBALS
  4. DHEA [Concomitant]
     Active Substance: PRASTERONE
  5. L-ARGININE [Concomitant]
     Active Substance: ARGININE
  6. GOCOVRI [Suspect]
     Active Substance: AMANTADINE
     Indication: DYSKINESIA
     Dosage: 137 MG, 1X/DAY
     Route: 048
     Dates: start: 20200103, end: 20200109
  7. RHODIOLA ROSEA (DIETARY SUPPLEMENT\HERBALS) [Suspect]
     Active Substance: DIETARY SUPPLEMENT\HERBALS
  8. UNSPECIFIED TRIGLYCERIDE MEDICATION(S) [Concomitant]
  9. MACA TABLET (DIETARY SUPPLEMENT\HERBALS) [Suspect]
     Active Substance: DIETARY SUPPLEMENT\HERBALS
  10. L-CITRULLINE [Concomitant]
     Active Substance: CITRULLINE
  11. UNSPECIFIED LEVODOPA-BASED THERAPY [Concomitant]
     Active Substance: LEVODOPA
  12. TESTOSTERONE CYPIONATE. [Concomitant]
     Active Substance: TESTOSTERONE CYPIONATE

REACTIONS (7)
  - Dysuria [Not Recovered/Not Resolved]
  - Hallucination [Not Recovered/Not Resolved]
  - Paranoia [Not Recovered/Not Resolved]
  - Benign prostatic hyperplasia [Unknown]
  - Drug interaction [Not Recovered/Not Resolved]
  - Insomnia [Not Recovered/Not Resolved]
  - Urinary hesitation [Not Recovered/Not Resolved]

NARRATIVE: CASE EVENT DATE: 202001
